FAERS Safety Report 21677026 (Version 2)
Quarter: 2022Q4

REPORT INFORMATION
  Report Type: Report from Study
  Country: US (occurrence: US)
  Receive Date: 20221203
  Receipt Date: 20221204
  Transmission Date: 20230112
  Serious: Yes (Other)
  Sender: FDA-Public Use
  Company Number: US-ABBVIE-4222381

PATIENT

DRUGS (1)
  1. LUPRON [Suspect]
     Active Substance: LEUPROLIDE ACETATE
     Indication: Product used for unknown indication
     Route: 065

REACTIONS (5)
  - Prostate cancer [Recovering/Resolving]
  - Hypersensitivity [Unknown]
  - Unevaluable event [Unknown]
  - General physical health deterioration [Unknown]
  - Hypoacusis [Unknown]
